FAERS Safety Report 4485876-4 (Version None)
Quarter: 2004Q3

REPORT INFORMATION
  Report Type: 
  Country: None (occurrence: None)
  Receive Date: 20040921
  Receipt Date: 20030930
  Transmission Date: 20050211
  Serious: Yes (Death)
  Sender: FDA-Public Use
  Company Number: 163-20785-03100046

PATIENT
  Age: 66 Year
  Sex: Male

DRUGS (5)
  1. THALOMID [Suspect]
     Indication: PANCREATIC CARCINOMA
     Dosage: 100 MG, DAILY, ORAL
     Route: 048
     Dates: start: 20030920, end: 20030923
  2. GEMCITABINE (GEMCITABINE) [Suspect]
     Indication: PANCREATIC CARCINOMA
  3. MS CONTIN [Concomitant]
  4. MORPHINE SULFATE [Concomitant]
  5. SENOKOT [Concomitant]

REACTIONS (2)
  - DEATH [None]
  - DISEASE PROGRESSION [None]
